FAERS Safety Report 9060703 (Version 2)
Quarter: 2013Q2

REPORT INFORMATION
  Report Type: Spontaneous
  Country: US (occurrence: US)
  Receive Date: 20130204
  Receipt Date: 20130501
  Transmission Date: 20140414
  Serious: Yes (Other)
  Sender: FDA-Public Use
  Company Number: US-ASTRAZENECA-2013SE05739

PATIENT
  Age: 71 Year
  Sex: Male
  Weight: 111.6 kg

DRUGS (8)
  1. NEXIUM [Suspect]
     Indication: GASTROOESOPHAGEAL REFLUX DISEASE
     Route: 048
     Dates: end: 20090904
  2. NEXIUM [Suspect]
     Indication: GASTROOESOPHAGEAL REFLUX DISEASE
     Route: 048
     Dates: end: 20090904
  3. OMEPRAZOLE [Suspect]
     Indication: GASTROOESOPHAGEAL REFLUX DISEASE
     Route: 048
  4. DIOVAN HCT [Concomitant]
     Dosage: 80/12.5 MG, DAILY
     Dates: start: 2010
  5. TRAVASTATIN [Concomitant]
     Dates: start: 1998
  6. FINESTERIDE [Concomitant]
     Dates: start: 2011
  7. BICALUTAMIDE [Concomitant]
     Dosage: 50 MG, INT
     Dates: start: 2011
  8. ASPIRIN [Concomitant]

REACTIONS (3)
  - Prostate cancer [Unknown]
  - Intentional drug misuse [Unknown]
  - Drug ineffective [Unknown]
